FAERS Safety Report 11756506 (Version 2)
Quarter: 2015Q4

REPORT INFORMATION
  Report Type: Spontaneous
  Country: GB (occurrence: GB)
  Receive Date: 20151119
  Receipt Date: 20151207
  Transmission Date: 20160304
  Serious: Yes (Death)
  Sender: FDA-Public Use
  Company Number: GB-009507513-1511GBR009276

PATIENT

DRUGS (1)
  1. NOXAFIL [Suspect]
     Active Substance: POSACONAZOLE
     Indication: PROPHYLAXIS
     Route: 048

REACTIONS (6)
  - Aspergillus infection [Fatal]
  - Mucormycosis [Fatal]
  - Loss of consciousness [Fatal]
  - Drug ineffective [Unknown]
  - Transplant [Fatal]
  - Graft versus host disease [Fatal]
